FAERS Safety Report 4393566-1 (Version None)
Quarter: 2004Q3

REPORT INFORMATION
  Report Type: 
  Country: None (occurrence: None)
  Receive Date: 20040701
  Receipt Date: 20040625
  Transmission Date: 20050211
  Serious: Yes (Other)
  Sender: FDA-Public Use
  Company Number: GB-JNJFOC-20040604066

PATIENT
  Age: 15 Year
  Sex: Female

DRUGS (3)
  1. RISPERDAL [Suspect]
     Dosage: 1 MG, 1 IN 1 DAY
  2. TOPIRAMATE [Suspect]
     Dosage: 50 MG, 2 IN 1 DAY
  3. CONCERTA [Suspect]
     Dosage: 54 MG

REACTIONS (1)
  - EYE MOVEMENT DISORDER [None]
